FAERS Safety Report 5460277-0 (Version None)
Quarter: 2007Q3

REPORT INFORMATION
  Report Type: 
  Country: None (occurrence: None)
  Receive Date: 20070919
  Receipt Date: 20070618
  Transmission Date: 20080115
  Serious: Yes (Other)
  Sender: FDA-Public Use
  Company Number: US-ASTRAZENECA-2007UW14504

PATIENT
  Age: 26 Year
  Sex: Female
  Weight: 68.5 kg

DRUGS (2)
  1. SEROQUEL [Suspect]
     Indication: BIPOLAR I DISORDER
     Route: 048
     Dates: start: 20070525
  2. LO/OVRAL [Concomitant]

REACTIONS (1)
  - SUICIDAL IDEATION [None]
